FAERS Safety Report 12944581 (Version 1)
Quarter: 2016Q4

REPORT INFORMATION
  Report Type: Spontaneous
  Country: US (occurrence: US)
  Receive Date: 20161115
  Receipt Date: 20161115
  Transmission Date: 20170207
  Serious: Yes (Hospitalization)
  Sender: FDA-Public Use
  Company Number: US-SA-2016SA206029

PATIENT
  Age: 70 Year
  Sex: Male
  Weight: 81.6 kg

DRUGS (21)
  1. AVAPRO [Concomitant]
     Active Substance: IRBESARTAN
  2. JANUVIA [Concomitant]
     Active Substance: SITAGLIPTIN PHOSPHATE
  3. FLECTOR [Concomitant]
     Active Substance: DICLOFENAC EPOLAMINE
  4. HYDROCHLOROTHIAZIDE. [Concomitant]
     Active Substance: HYDROCHLOROTHIAZIDE
  5. VIBRAMYCIN [Concomitant]
     Active Substance: DOXYCYCLINE
  6. HYDRALAZINE [Concomitant]
     Active Substance: HYDRALAZINE HYDROCHLORIDE
  7. HYDROCODONE [Concomitant]
     Active Substance: HYDROCODONE
  8. LANTUS [Concomitant]
     Active Substance: INSULIN GLARGINE
  9. GLIMEPIRIDE. [Concomitant]
     Active Substance: GLIMEPIRIDE
  10. PLAVIX [Suspect]
     Active Substance: CLOPIDOGREL BISULFATE
     Route: 065
     Dates: start: 201609
  11. PRAVASTATIN SODIUM. [Concomitant]
     Active Substance: PRAVASTATIN SODIUM
  12. METOPROLOL. [Concomitant]
     Active Substance: METOPROLOL
  13. VERAPAMIL [Concomitant]
     Active Substance: VERAPAMIL HYDROCHLORIDE
  14. GABAPENTIN. [Concomitant]
     Active Substance: GABAPENTIN
  15. FLEXERIL [Concomitant]
     Active Substance: CYCLOBENZAPRINE HYDROCHLORIDE
  16. QUININE SULFATE. [Concomitant]
     Active Substance: QUININE SULFATE
  17. METFORMIN [Concomitant]
     Active Substance: METFORMIN HYDROCHLORIDE
  18. MUCINEX [Concomitant]
     Active Substance: GUAIFENESIN
  19. BUPROPION. [Concomitant]
     Active Substance: BUPROPION
  20. VOLTAREN [Concomitant]
     Active Substance: DICLOFENAC SODIUM
  21. DOXYCYCLINE. [Concomitant]
     Active Substance: DOXYCYCLINE

REACTIONS (8)
  - Asthenia [Unknown]
  - Fall [Unknown]
  - Hypotension [Unknown]
  - Blood glucose increased [Unknown]
  - Dyskinesia [Unknown]
  - Hypertension [Recovered/Resolved]
  - Somnolence [Unknown]
  - Syncope [Unknown]

NARRATIVE: CASE EVENT DATE: 201609
